FAERS Safety Report 9358334 (Version 1)
Quarter: 2013Q2

REPORT INFORMATION
  Report Type: Spontaneous
  Country: US (occurrence: None)
  Receive Date: 20130619
  Receipt Date: 20130619
  Transmission Date: 20140414
  Serious: Yes (Other)
  Sender: FDA-Public Use
  Company Number: None

PATIENT
  Age: 81 Year
  Sex: Female
  Weight: 68.2 kg

DRUGS (1)
  1. ZOLEDRONIC ACID [Suspect]
     Indication: OSTEOPOROSIS
     Dosage: EVERY 366 DAYS
     Route: 042
     Dates: end: 19130614

REACTIONS (5)
  - Pyrexia [None]
  - Pain [None]
  - Movement disorder [None]
  - Hypophagia [None]
  - Malaise [None]
